FAERS Safety Report 14402580 (Version 1)
Quarter: 2018Q1

REPORT INFORMATION
  Report Type: Spontaneous
  Country: US (occurrence: US)
  Receive Date: 20180117
  Receipt Date: 20180117
  Transmission Date: 20180509
  Serious: Yes (Hospitalization, Other)
  Sender: FDA-Public Use
  Company Number: US-IPSEN BIOPHARMACEUTICALS, INC.-2018-00922

PATIENT
  Age: 8 Year
  Sex: Female
  Weight: 25 kg

DRUGS (3)
  1. BOTULINUM TOXIN [Suspect]
     Active Substance: BOTULINUM TOXIN NOS
     Indication: SALIVARY HYPERSECRETION
     Dosage: NOT REPORTED
     Route: 065
  2. BOTULINUM TOXIN [Suspect]
     Active Substance: BOTULINUM TOXIN NOS
     Indication: OFF LABEL USE
     Dosage: 25 UNITS
     Route: 065
  3. BOTULINUM TOXIN [Suspect]
     Active Substance: BOTULINUM TOXIN NOS
     Indication: SALIVARY HYPERSECRETION
     Dosage: 25 UNITS
     Route: 065

REACTIONS (8)
  - Hypophagia [Recovered/Resolved]
  - Choking [Unknown]
  - Dehydration [Unknown]
  - Drug effective for unapproved indication [Unknown]
  - Pharyngeal disorder [Unknown]
  - Dysphagia [Unknown]
  - Off label use [Unknown]
  - Cough [Unknown]
